FAERS Safety Report 16213590 (Version 1)
Quarter: 2019Q2

REPORT INFORMATION
  Report Type: Spontaneous
  Country: MX (occurrence: MX)
  Receive Date: 20190418
  Receipt Date: 20190418
  Transmission Date: 20190711
  Serious: Yes (Hospitalization, Other)
  Sender: FDA-Public Use
  Company Number: MX-ALVOGEN-2019-ALVOGEN-099463

PATIENT
  Age: 15739 Day
  Sex: Female
  Weight: 82 kg

DRUGS (7)
  1. ASCORBIC ACID/CYANOCOBALAMIN/FOLIC ACID/FERROUS FUMARATE [Interacting]
     Active Substance: ASCORBIC ACID\CYANOCOBALAMIN\FERROUS FUMARATE\FOLIC ACID
     Indication: GASTRITIS
     Dosage: 40.0MG AS REQUIRED
     Route: 048
     Dates: start: 20040101
  2. FENOVERINE [Interacting]
     Active Substance: FENOVERINE
     Indication: COLITIS
     Dosage: 200.0MG AS REQUIRED
     Route: 048
     Dates: start: 20040101
  3. FENOVERINE [Interacting]
     Active Substance: FENOVERINE
     Indication: COLITIS
     Dosage: 200.0MG AS REQUIRED
     Route: 048
     Dates: start: 20030101, end: 20160101
  4. BETAMETHASONE. [Interacting]
     Active Substance: BETAMETHASONE
     Indication: LUNG DISORDER
     Route: 065
  5. ATENOLOL/CHLORTALIDONE [Suspect]
     Active Substance: ATENOLOL\CHLORTHALIDONE
     Indication: PULMONARY HYPERTENSION
     Dosage: 50/12.5 MG, ONE TABLET EVERY 12 HOURS
     Route: 048
     Dates: start: 20090101
  6. EMPAGLIFLOZIN [Interacting]
     Active Substance: EMPAGLIFLOZIN
     Indication: TYPE 2 DIABETES MELLITUS
     Route: 048
     Dates: start: 20140101
  7. GABAPENTIN. [Interacting]
     Active Substance: GABAPENTIN
     Indication: BACK PAIN
     Dosage: 400 MG, 1 TABLET EVERY 12 HOURS
     Route: 048
     Dates: start: 20160101

REACTIONS (12)
  - Cystitis [Not Recovered/Not Resolved]
  - Impaired healing [Unknown]
  - Weight increased [Unknown]
  - Drug interaction [Unknown]
  - Increased appetite [Unknown]
  - Spinal fracture [Recovered/Resolved]
  - Constipation [Unknown]
  - Hypertonic bladder [Unknown]
  - Pyelonephritis [Recovered/Resolved]
  - Type 2 diabetes mellitus [Not Recovered/Not Resolved]
  - Nephrolithiasis [Recovered/Resolved]
  - Fall [Recovered/Resolved]

NARRATIVE: CASE EVENT DATE: 20120101
